FAERS Safety Report 7599524-8 (Version None)
Quarter: 2011Q3

REPORT INFORMATION
  Report Type: 
  Country: None (occurrence: None)
  Receive Date: 20110711
  Receipt Date: 20090716
  Transmission Date: 20111222
  Serious: Yes (Hospitalization, Other)
  Sender: FDA-Public Use
  Company Number: US-BAYER-200926369NA

PATIENT
  Age: 67 Year
  Sex: Male
  Weight: 72.109 kg

DRUGS (30)
  1. HEPARIN [Concomitant]
     Dosage: PER PROTOCOL
     Route: 042
  2. HEPARIN [Concomitant]
     Dosage: 15000 U
     Route: 042
  3. CEFTRIAXONE [Concomitant]
     Dosage: 1 G
     Route: 042
  4. SEPTRA [Concomitant]
     Route: 048
  5. NPH INSULIN [Concomitant]
     Dosage: 25 U, BID
     Route: 058
  6. NAPROXEN (ALEVE) [Concomitant]
     Route: 048
  7. CAPTOPRIL [Concomitant]
     Dosage: 25 MG, QD
     Route: 048
  8. VANCOMYCIN HCL [Concomitant]
     Dosage: 2 G
     Route: 042
  9. TRASYLOL [Suspect]
     Indication: PRODUCT USED FOR UNKNOWN INDICATION
     Dosage: 200 ML, LOADING DOSE
     Route: 042
     Dates: start: 20020524
  10. ZINACEF [Concomitant]
     Dosage: 1.5 G
     Route: 042
     Dates: start: 20020524
  11. DOPAMINE HCL [Concomitant]
     Dosage: 400 MG
     Route: 042
  12. ASPIRIN [Concomitant]
     Dosage: 5 GRAINS, BID
     Route: 048
  13. INTEGRILIN [Concomitant]
     Dosage: 11 ML/HOUR
     Route: 042
  14. GLUCOPHAGE [Concomitant]
     Dosage: 500 MG, BID
     Route: 048
  15. ISOVUE-128 [Concomitant]
     Indication: CATHETERISATION CARDIAC
     Dosage: 125 CC
     Dates: start: 20020521
  16. NITROGLYCERIN [Concomitant]
     Dosage: 10 MCG/MINUTE
     Route: 042
  17. GLYBURIDE [Concomitant]
     Dosage: 2.5 MG, BID
     Route: 048
  18. ENALAPRIL MALEATE [Concomitant]
     Dosage: 25 MG, QD
     Route: 048
  19. MANNITOL [Concomitant]
     Dosage: 25 G
     Route: 042
  20. PHENYLEPHRINE HCL [Concomitant]
     Dosage: 0.5 MG TO 1 MG
     Route: 042
  21. MORPHINE SULFATE [Concomitant]
     Route: 042
  22. PROTONIX [Concomitant]
     Dosage: 40 MG, QD
     Route: 048
  23. PROTAMINE SULFATE [Concomitant]
     Dosage: 200 MG
     Route: 042
  24. RED BLOOD CELLS [Concomitant]
     Dosage: 1 U, ONCE
     Route: 042
  25. IMDUR [Concomitant]
     Dosage: 30 MG, QD
     Route: 048
     Dates: start: 20020521
  26. TENORMIN [Concomitant]
     Dosage: 25 MG, QD
     Route: 048
  27. FENTANYL [Concomitant]
     Dosage: 5 TO 10 MG
     Route: 042
  28. ZANTAC [Concomitant]
     Dosage: 150 MG, QD
     Route: 048
  29. ACETYLSALICYLIC ACID SRT [Concomitant]
     Dosage: 81 MG, QD
     Route: 048
  30. LASIX [Concomitant]
     Dosage: 20 MG
     Route: 042

REACTIONS (16)
  - DEAFNESS UNILATERAL [None]
  - COMA [None]
  - RASH [None]
  - RENAL FAILURE [None]
  - EMOTIONAL DISTRESS [None]
  - RESPIRATORY FAILURE [None]
  - MULTI-ORGAN FAILURE [None]
  - ANXIETY [None]
  - PAIN [None]
  - CEREBROVASCULAR ACCIDENT [None]
  - RENAL INJURY [None]
  - ACUTE RESPIRATORY DISTRESS SYNDROME [None]
  - RENAL IMPAIRMENT [None]
  - UNEVALUABLE EVENT [None]
  - STRESS [None]
  - FEAR [None]
